FAERS Safety Report 9411878 (Version 4)
Quarter: 2013Q4

REPORT INFORMATION
  Report Type: Spontaneous
  Country: GB (occurrence: GB)
  Receive Date: 20130722
  Receipt Date: 20131028
  Transmission Date: 20140711
  Serious: Yes (Other)
  Sender: FDA-Public Use
  Company Number: PHFR2013GB003288

PATIENT
  Age: 42 Year
  Sex: Female

DRUGS (36)
  1. COD-LIVER OIL CAPSULES [Concomitant]
     Dosage: 1 DF, QD
  2. DESMOPRESSIN [Concomitant]
     Dosage: 2 DF, QD
  3. ESCITALOPRAM [Concomitant]
     Dosage: 1 DF, QD
  4. OMEPRAZOLE [Concomitant]
     Dosage: 1 DF, QD
  5. SENNA [Concomitant]
     Dosage: 4 DF, (1 DF AT 13:00 AND 3 DF AT 18:00)
  6. SODIUM VALPROATE [Concomitant]
     Dosage: 4 DF, BID
  7. SYMBICORT [Concomitant]
     Dosage: 3 DF, TID
  8. SYMBICORT [Concomitant]
     Dosage: UNK UKN, PRN
  9. BECLOMETASONE [Concomitant]
     Dosage: 2 DF, BID, (2 SPRAY AT 10.30 AND 2 SPRAY AT 21.00)
     Route: 045
  10. TRIHEXYPHENIDYL [Concomitant]
     Dosage: 1 DF, TID
  11. CETIRIZINE [Concomitant]
     Dosage: 1 DF, QD
  12. MONTELUKAST SODIUM [Concomitant]
     Dosage: 1 DF, QD
  13. PROCYCLIDINE [Concomitant]
     Dosage: 1 DF, QD
  14. PROCYCLIDINE [Concomitant]
     Dosage: 1 DF, PRN (1 UP TO 3 TIMES A DAY)
  15. METFORMIN [Concomitant]
     Dosage: 1 DF, TID
  16. ADCAL//CALCIUM CARBONATE [Concomitant]
     Dosage: 1 DF, BID
  17. SALBUTAMOL [Concomitant]
     Dosage: UNK UKN, TID (5 MG IN 2.5 MG)
  18. SALBUTAMOL [Concomitant]
     Dosage: 100 UG, PRN
  19. IPRATROPIUM BROMIDE [Concomitant]
     Dosage: 1 DF, QID
  20. ALENDRONIC ACID [Concomitant]
     Dosage: 1 DF, QW
  21. DOCUSATE SODIUM [Concomitant]
     Dosage: UNK UKN, TID (1 DOSE AT 10:30, 2 DOSES AT 18:00 AND 2 DOSES AT 21:00)
  22. LACTULOSE [Concomitant]
     Dosage: UNK UKN, BID (AT 10:30 AND 21:30)
  23. MOVICOL [Concomitant]
     Dosage: UNK UKN, BID (25 ML IN 100 ML WATER, AT 10:30 AND 18:00)
  24. PHOLCODINE LINCTUS [Concomitant]
     Dosage: UNK UKN, PRN (5 ML/ 10 ML, 3 TO 4 TIMES A DAY)
  25. PARACETAMOL [Concomitant]
     Dosage: UNK UKN, PRN (AS REQUIRED, 2 EVERY 6 HOURS MAX OF 8 IN A DAY)
  26. IBUPROFEN [Concomitant]
     Dosage: 1 DF, PRN (1 UP TO 4 TIMES A DAY)
  27. MACROGOL [Concomitant]
     Dosage: 1 DF, PRN (ONE SACHET A DAY)
  28. CLOZARIL [Suspect]
     Dosage: UNK
     Route: 048
     Dates: start: 20000210
  29. CLOZARIL [Suspect]
     Dosage: 100 MG, (2 DOSES AT 13:00 AND 3 DOSES AT 21:00)
     Route: 048
  30. CLOZARIL [Suspect]
     Dosage: 25 MG, (2 DOSES AT 13:00)
     Route: 048
  31. SULPIRIDE [Concomitant]
     Dosage: 1 DF, QD (200 MG STRENGTH)
  32. SULPIRIDE [Concomitant]
     Dosage: 2 DF, TID (400 MG STRENGTH)
  33. SULPIRIDE [Concomitant]
     Dosage: 200 MG, PRN
  34. ZOLPIDEM [Concomitant]
     Dosage: 2 DF, QD
  35. ATORVASTATIN [Concomitant]
     Dosage: 1 DF, QD
  36. BISACODYL [Concomitant]
     Dosage: 2 DF, BID

REACTIONS (3)
  - Chronic obstructive pulmonary disease [Not Recovered/Not Resolved]
  - Asthma [Not Recovered/Not Resolved]
  - White blood cell count increased [Recovered/Resolved]
